FAERS Safety Report 9039094 (Version 1)
Quarter: 2013Q1

REPORT INFORMATION
  Report Type: Spontaneous
  Country: US (occurrence: None)
  Receive Date: 20130122
  Receipt Date: 20130122
  Transmission Date: 20140127
  Serious: Yes (Hospitalization, Disabling, Other)
  Sender: FDA-Public Use
  Company Number: None

PATIENT
  Sex: Female
  Weight: 72.7 kg

DRUGS (11)
  1. COPAXONE [Suspect]
     Indication: MULTIPLE SCLEROSIS
     Dosage: 20MG/1ML (1) 1 X DAILY 057
     Route: 058
     Dates: start: 20130109
  2. COPAXONE [Suspect]
     Indication: RELAPSING-REMITTING MULTIPLE SCLEROSIS
     Dosage: 20MG/1ML (1) 1 X DAILY 057
     Route: 058
     Dates: start: 20130105, end: 20130108
  3. COPAXONE [Concomitant]
  4. LAMOTRIGINE [Concomitant]
  5. BACLOFEN [Concomitant]
  6. NEURONTIN [Concomitant]
  7. NASONEX [Concomitant]
  8. NABUMETONE [Concomitant]
  9. FLUOXETINE [Concomitant]
  10. BUDEPRION [Concomitant]
  11. TRAZADONE [Concomitant]

REACTIONS (6)
  - Injection site erythema [None]
  - Injection site swelling [None]
  - Product contamination with body fluid [None]
  - Stress [None]
  - Anxiety [None]
  - Multiple sclerosis relapse [None]
